FAERS Safety Report 11257977 (Version 2)
Quarter: 2015Q3

REPORT INFORMATION
  Report Type: Spontaneous
  Country: US (occurrence: None)
  Receive Date: 20150708
  Receipt Date: 20150715
  Transmission Date: 20151125
  Serious: Yes (Hospitalization, Other)
  Sender: FDA-Public Use
  Company Number: US-H14001-15-01023

PATIENT
  Age: 58 Year
  Sex: Female

DRUGS (1)
  1. PREDNISONE (PREDNISONE) (UNKNOWN) (PREDNISONE) [Suspect]
     Active Substance: PREDNISONE
     Indication: TEMPORAL ARTERITIS

REACTIONS (4)
  - Neurological decompensation [None]
  - Cushingoid [None]
  - Epidural lipomatosis [None]
  - Cauda equina syndrome [None]
